FAERS Safety Report 8612047-X (Version None)
Quarter: 2012Q3

REPORT INFORMATION
  Report Type: 
  Country: None (occurrence: None)
  Receive Date: 20120809
  Receipt Date: 20120802
  Transmission Date: 20120928
  Serious: Yes (Death)
  Sender: FDA-Public Use
  Company Number: JP-2012-15956

PATIENT
  Age: 89 Year
  Sex: Female
  Weight: 48 kg

DRUGS (6)
  1. CARVEDILOL [Concomitant]
  2. MAGMITT (MAGNESIUM OXIDE) [Concomitant]
  3. PURSENNID (SENNOSIDE A+B CALCIUM) [Concomitant]
  4. LEVOFLOXACIN [Concomitant]
  5. WARFARIN SODIUM [Concomitant]
  6. SAMSCA [Suspect]
     Indication: FLUID RETENTION
     Dosage: 15 MG MILLIGRAM(S), QAM, ORAL
     Route: 048
     Dates: start: 20120626, end: 20120701

REACTIONS (4)
  - HYPERNATRAEMIA [None]
  - CARDIAC FAILURE [None]
  - CONDITION AGGRAVATED [None]
  - AORTIC VALVE STENOSIS [None]
